FAERS Safety Report 5134036-2 (Version None)
Quarter: 2006Q4

REPORT INFORMATION
  Report Type: 
  Country: None (occurrence: None)
  Receive Date: 20061019
  Receipt Date: 20061004
  Transmission Date: 20070319
  Serious: Yes (Death)
  Sender: FDA-Public Use
  Company Number: WAES 0610USA04501

PATIENT
  Sex: 0

DRUGS (13)
  1. NOROXIN [Suspect]
     Indication: DRUG USE FOR UNKNOWN INDICATION
     Dosage: 0.2 GM/TID PO
     Route: 048
  2. GENTAMICIN [Suspect]
     Indication: DRUG USE FOR UNKNOWN INDICATION
     Dosage: 80,000 [UNIT]/BID PO
     Route: 048
  3. FLUCONAZOLE [Suspect]
     Indication: DRUG USE FOR UNKNOWN INDICATION
     Dosage: 0.2 GM/DAILY OPHT
     Route: 047
  4. SULFAMETHOXAZOLE [Suspect]
     Indication: DRUG USE FOR UNKNOWN INDICATION
     Dosage: 0.4 GM/DAILY PO
     Route: 048
  5. NS CHLORTETRACYCLINE [Suspect]
     Indication: DRUG USE FOR UNKNOWN INDICATION
     Dosage: INH
     Route: 055
  6. CHLORHEXIDINE ACETATE [Suspect]
     Indication: DRUG USE FOR UNKNOWN INDICATION
  7. ANTIMICROBIAL (UNSPECIFIED) [Suspect]
     Indication: DRUG USE FOR UNKNOWN INDICATION
  8. ACYCLOVIR [Suspect]
     Indication: DRUG USE FOR UNKNOWN INDICATION
     Dosage: 0.2 GM/5XD
  9. CYCLOPHOSPHAMIDE [Suspect]
     Indication: DRUG USE FOR UNKNOWN INDICATION
     Dosage: 1/2 MG/KG/DAILY
  10. CYCLOPHOSPHAMIDE [Suspect]
     Indication: DRUG USE FOR UNKNOWN INDICATION
     Dosage: 50 MG/KG/DAILY
  11. THERAPY UNSPECIFIED [Suspect]
     Indication: DRUG USE FOR UNKNOWN INDICATION
     Dosage: 30 MG/KG/DAILY
  12. GENTAMICIN [Concomitant]
  13. NEUPOGEN [Concomitant]

REACTIONS (1)
  - CYTOMEGALOVIRUS INFECTION [None]
